FAERS Safety Report 4507413-8 (Version None)
Quarter: 2004Q4

REPORT INFORMATION
  Report Type: 
  Country: None (occurrence: None)
  Receive Date: 20041118
  Receipt Date: 20041111
  Transmission Date: 20050328
  Serious: Yes (Hospitalization)
  Sender: FDA-Public Use
  Company Number: SUSI-2004-00722

PATIENT
  Age: 10 Year
  Sex: Male
  Weight: 27.7 kg

DRUGS (2)
  1. ADDERALL XR (AMPHETAMINE ASPARTATE, AMPHETAMINE SULFATE, DEXTROAMPHETA [Suspect]
     Indication: ATTENTION DEFICIT/HYPERACTIVITY DISORDER
     Dosage: 5 MG, 1X/DAY:QD, ORAL
     Route: 048
     Dates: start: 20041107, end: 20041107
  2. ZYRTEC (CETIRIZINE HYDROCHOORIDE) SYRUP [Concomitant]

REACTIONS (4)
  - DYSARTHRIA [None]
  - FEELING ABNORMAL [None]
  - PARAESTHESIA [None]
  - PARALYSIS [None]
